FAERS Safety Report 17682714 (Version 4)
Quarter: 2020Q3

REPORT INFORMATION
  Report Type: Spontaneous
  Country: DE (occurrence: DE)
  Receive Date: 20200419
  Receipt Date: 20200717
  Transmission Date: 20201102
  Serious: Yes (Hospitalization, Other)
  Sender: FDA-Public Use
  Company Number: DE-BIOGEN-2020BI00862678

PATIENT
  Age: 69 Year
  Sex: Female

DRUGS (2)
  1. FAMPYRA [Suspect]
     Active Substance: DALFAMPRIDINE
     Indication: GAIT DISTURBANCE
     Route: 048
     Dates: start: 20110701
  2. TECFIDERA [Suspect]
     Active Substance: DIMETHYL FUMARATE
     Indication: MULTIPLE SCLEROSIS
     Dosage: MAINTENANCE DOSE
     Route: 048
     Dates: start: 20140515

REACTIONS (7)
  - Malaise [Unknown]
  - Stress [Unknown]
  - Injury [Not Recovered/Not Resolved]
  - Hand fracture [Recovered/Resolved]
  - Stupor [Unknown]
  - Fall [Recovered/Resolved]
  - Multiple sclerosis [Not Recovered/Not Resolved]

NARRATIVE: CASE EVENT DATE: 202003
